FAERS Safety Report 22287404 (Version 1)
Quarter: 2023Q2

REPORT INFORMATION
  Report Type: Spontaneous
  Country: CN (occurrence: CN)
  Receive Date: 20230505
  Receipt Date: 20230505
  Transmission Date: 20230721
  Serious: Yes (Other)
  Sender: FDA-Public Use
  Company Number: CN-002147023-NVSC2023CN099432

PATIENT
  Age: 88 Year
  Sex: Female

DRUGS (1)
  1. VORICONAZOLE [Suspect]
     Active Substance: VORICONAZOLE
     Indication: Aspergillus infection
     Dosage: 0.2 G, BID
     Route: 048
     Dates: start: 20230304, end: 20230307

REACTIONS (4)
  - Delirium [Recovering/Resolving]
  - Hallucination [Recovering/Resolving]
  - Disorganised speech [Unknown]
  - Psychiatric symptom [Unknown]

NARRATIVE: CASE EVENT DATE: 20230305
